FAERS Safety Report 14485703 (Version 2)
Quarter: 2018Q1

REPORT INFORMATION
  Report Type: Report from Study
  Country: JP (occurrence: JP)
  Receive Date: 20180205
  Receipt Date: 20180302
  Transmission Date: 20180509
  Serious: Yes (Hospitalization, Other)
  Sender: FDA-Public Use
  Company Number: JP-ACTELION-A-CH2017-149023

PATIENT
  Age: 82 Year
  Sex: Female

DRUGS (40)
  1. EPOPROSTENOL ACT [Suspect]
     Active Substance: EPOPROSTENOL
     Indication: PULMONARY ARTERIAL HYPERTENSION
     Dosage: 0.2 NG/KG, PER MIN
     Route: 042
     Dates: start: 20150722
  2. UPTRAVI [Suspect]
     Active Substance: SELEXIPAG
     Dosage: 1.6 MG, BID
     Route: 048
     Dates: start: 20170803
  3. TADALAFIL [Concomitant]
     Active Substance: TADALAFIL
  4. AMLODIPINE BESILATE [Concomitant]
     Active Substance: AMLODIPINE BESYLATE
  5. LINAGLIPTIN [Concomitant]
     Active Substance: LINAGLIPTIN
  6. TEPRENONE [Concomitant]
     Active Substance: TEPRENONE
  7. MOSAPRIDE CITRATE [Concomitant]
     Active Substance: MOSAPRIDE CITRATE
  8. EPOPROSTENOL ACT [Suspect]
     Active Substance: EPOPROSTENOL
     Dosage: 12.0 NG/KG, PER MIN
     Route: 042
     Dates: start: 20150822
  9. EPOPROSTENOL ACT [Suspect]
     Active Substance: EPOPROSTENOL
     Dosage: 12.8 NG/KG, PER MIN
     Route: 042
     Dates: start: 20160420
  10. EPOPROSTENOL ACT [Suspect]
     Active Substance: EPOPROSTENOL
     Dosage: 3 NG/KG, PER MIN
     Route: 042
     Dates: start: 20171129
  11. FERROUS SULFATE. [Concomitant]
     Active Substance: FERROUS SULFATE
  12. EPOPROSTENOL ACT [Suspect]
     Active Substance: EPOPROSTENOL
     Dosage: 5 NG/KG, PER MIN
     Route: 042
     Dates: start: 20170715
  13. UPTRAVI [Suspect]
     Active Substance: SELEXIPAG
     Indication: PULMONARY ARTERIAL HYPERTENSION
     Dosage: 0.2 MG, BID
     Route: 048
     Dates: start: 20170120
  14. TRACLEER [Concomitant]
     Active Substance: BOSENTAN
     Dosage: 62.5 UNK, UNK
     Route: 048
  15. FUROSEMIDE. [Concomitant]
     Active Substance: FUROSEMIDE
  16. ESOMEPRAZOLE MAGNESIUM. [Concomitant]
     Active Substance: ESOMEPRAZOLE MAGNESIUM
  17. RIOCIGUAT [Concomitant]
     Active Substance: RIOCIGUAT
  18. PREDONINE [Suspect]
     Active Substance: PREDNISOLONE
     Indication: PRODUCT USED FOR UNKNOWN INDICATION
     Route: 065
  19. CEFDINIR. [Concomitant]
     Active Substance: CEFDINIR
  20. ISCOTIN [Concomitant]
     Active Substance: ISONIAZID
  21. PYDOXAL [Concomitant]
     Active Substance: PYRIDOXAL
  22. EPOPROSTENOL ACT [Suspect]
     Active Substance: EPOPROSTENOL
     Dosage: 8 NG/KG, PER MIN
     Route: 042
     Dates: start: 20170421
  23. EPOPROSTENOL ACT [Suspect]
     Active Substance: EPOPROSTENOL
     Dosage: 1 NG/KG, PER MIN
     Route: 042
     Dates: start: 20171205
  24. EPOPROSTENOL ACT [Suspect]
     Active Substance: EPOPROSTENOL
     Dosage: 4.9 NG/KG, PER MIN
     Route: 042
  25. CEFTRIAXONE. [Suspect]
     Active Substance: CEFTRIAXONE
     Indication: PRODUCT USED FOR UNKNOWN INDICATION
     Route: 065
  26. DAIPHEN [Suspect]
     Active Substance: SULFAMETHOXAZOLE\TRIMETHOPRIM
     Indication: PULMONARY ARTERIAL HYPERTENSION
     Dosage: 1 DF, QD
     Route: 048
     Dates: start: 201606, end: 20170127
  27. CEFAZOLIN SODIUM. [Suspect]
     Active Substance: CEFAZOLIN SODIUM
     Indication: PRODUCT USED FOR UNKNOWN INDICATION
     Route: 065
  28. URSODEOXYCHOLIC ACID [Concomitant]
     Active Substance: URSODIOL
  29. FEXOFENADINE HYDROCHLORIDE. [Concomitant]
     Active Substance: FEXOFENADINE HYDROCHLORIDE
  30. EPOPROSTENOL ACT [Suspect]
     Active Substance: EPOPROSTENOL
     Dosage: 12.72 NG/KG, PER MIN
     Route: 042
     Dates: start: 20150922
  31. EPOPROSTENOL ACT [Suspect]
     Active Substance: EPOPROSTENOL
     Dosage: 12.77 NG/KG, PER MIN
     Route: 042
     Dates: start: 20151126
  32. EPOPROSTENOL ACT [Suspect]
     Active Substance: EPOPROSTENOL
     Dosage: 12.9 NG/KG, PER MIN
     Route: 042
     Dates: start: 20170113
  33. OPSUMIT [Concomitant]
     Active Substance: MACITENTAN
     Indication: PULMONARY ARTERIAL HYPERTENSION
     Dosage: 10 MG, UNK
     Route: 048
  34. SPIRONOLACTONE. [Concomitant]
     Active Substance: SPIRONOLACTONE
  35. OXYGEN. [Concomitant]
     Active Substance: OXYGEN
  36. EPOPROSTENOL ACT [Suspect]
     Active Substance: EPOPROSTENOL
     Dosage: 7 NG/KG, PER MIN
     Route: 042
     Dates: start: 20170510
  37. EPOPROSTENOL ACT [Suspect]
     Active Substance: EPOPROSTENOL
     Dosage: 6 NG/KG, PER MIN
     Route: 042
     Dates: start: 20170614
  38. TRACLEER [Concomitant]
     Active Substance: BOSENTAN
     Dosage: 62.5 UNK, UNK
     Route: 048
  39. BERAPROST SODIUM [Concomitant]
     Active Substance: BERAPROST SODIUM
  40. FEBUXOSTAT. [Concomitant]
     Active Substance: FEBUXOSTAT

REACTIONS (26)
  - Normocytic anaemia [Recovering/Resolving]
  - Influenza [Recovering/Resolving]
  - Eyelids pruritus [Recovering/Resolving]
  - Pain in jaw [Recovering/Resolving]
  - Rash [Recovered/Resolved]
  - Eyelid oedema [Recovering/Resolving]
  - Erythema of eyelid [Recovering/Resolving]
  - Platelet count decreased [Recovered/Resolved]
  - Pneumonia [Recovered/Resolved]
  - Nausea [Recovered/Resolved]
  - Anaemia [Recovering/Resolving]
  - Erythema [Recovered/Resolved]
  - Hot flush [Recovered/Resolved]
  - Glossodynia [Recovering/Resolving]
  - Gouty arthritis [Recovering/Resolving]
  - Blood pressure decreased [Recovered/Resolved]
  - Cellulitis [Recovered/Resolved]
  - Dizziness [Recovered/Resolved]
  - Faeces soft [Recovered/Resolved]
  - Tooth extraction [Recovered/Resolved]
  - Vomiting [Recovered/Resolved]
  - Renal impairment [Recovering/Resolving]
  - Rheumatoid arthritis [Recovering/Resolving]
  - Head discomfort [Recovered/Resolved]
  - Headache [Recovering/Resolving]
  - Flushing [Recovered/Resolved]

NARRATIVE: CASE EVENT DATE: 20150725
